FAERS Safety Report 13107546 (Version 1)
Quarter: 2017Q1

REPORT INFORMATION
  Report Type: Spontaneous
  Country: US (occurrence: US)
  Receive Date: 20170112
  Receipt Date: 20170112
  Transmission Date: 20170428
  Serious: No
  Sender: FDA-Public Use
  Company Number: US-BIOGEN-2017BI00339995

PATIENT
  Sex: Female

DRUGS (2)
  1. TYSABRI [Suspect]
     Active Substance: NATALIZUMAB
     Indication: MULTIPLE SCLEROSIS
     Route: 065
     Dates: start: 20090828, end: 20100116
  2. TYSABRI [Suspect]
     Active Substance: NATALIZUMAB
     Dates: start: 20090828

REACTIONS (2)
  - Drug dose omission [Not Recovered/Not Resolved]
  - Influenza [Not Recovered/Not Resolved]
